FAERS Safety Report 7747431-X (Version None)
Quarter: 2011Q3

REPORT INFORMATION
  Report Type: 
  Country: None (occurrence: None)
  Receive Date: 20110913
  Receipt Date: 20110908
  Transmission Date: 20111222
  Serious: Yes (Hospitalization, Other)
  Sender: FDA-Public Use
  Company Number: CH-VIIV HEALTHCARE LIMITED-B0746756A

PATIENT
  Age: 38 Year
  Sex: Female
  Weight: 90 kg

DRUGS (13)
  1. PREZISTA [Suspect]
     Indication: PRODUCT USED FOR UNKNOWN INDICATION
     Dosage: 600MG TWICE PER DAY
     Route: 048
     Dates: start: 20110528, end: 20110621
  2. ISENTRESS [Concomitant]
     Dosage: 400MG TWICE PER DAY
     Route: 048
     Dates: start: 20110621
  3. SULFADIAZINE [Concomitant]
     Dosage: 1500MG FOUR TIMES PER DAY
     Route: 048
     Dates: start: 20110607, end: 20110622
  4. KEPPRA [Concomitant]
     Dosage: 1000MG TWICE PER DAY
     Route: 048
     Dates: start: 20110701
  5. LEUCOVORIN CALCIUM [Concomitant]
     Route: 048
  6. FRAGMIN [Concomitant]
     Route: 058
  7. DIFLUCAN [Concomitant]
     Dosage: 200MG PER DAY
     Route: 042
     Dates: start: 20110621, end: 20110623
  8. VALPROIC ACID [Suspect]
     Indication: PRODUCT USED FOR UNKNOWN INDICATION
     Dosage: 600MG THREE TIMES PER DAY
     Route: 042
     Dates: start: 20110608, end: 20110615
  9. DARAPRIM [Concomitant]
     Dosage: 75MG PER DAY
     Route: 048
     Dates: start: 20110607, end: 20110622
  10. TRUVADA [Concomitant]
     Route: 048
     Dates: start: 20110528
  11. RETROVIR [Suspect]
     Indication: PRODUCT USED FOR UNKNOWN INDICATION
     Dosage: 300MG TWICE PER DAY
     Route: 048
     Dates: start: 20110528, end: 20110621
  12. NAVOBAN [Concomitant]
     Dosage: 5MG AS REQUIRED
     Route: 048
     Dates: start: 20110611
  13. NORVIR [Suspect]
     Indication: PRODUCT USED FOR UNKNOWN INDICATION
     Dosage: 100MG TWICE PER DAY
     Route: 048
     Dates: start: 20110528, end: 20110621

REACTIONS (6)
  - ERYTHROPENIA [None]
  - ASPARTATE AMINOTRANSFERASE INCREASED [None]
  - LYMPHOPENIA [None]
  - GAMMA-GLUTAMYLTRANSFERASE INCREASED [None]
  - LEUKOPENIA [None]
  - ALANINE AMINOTRANSFERASE INCREASED [None]
